FAERS Safety Report 12259193 (Version 1)
Quarter: 2016Q2

REPORT INFORMATION
  Report Type: Spontaneous
  Country: US (occurrence: US)
  Receive Date: 20160412
  Receipt Date: 20160412
  Transmission Date: 20160815
  Serious: No
  Sender: FDA-Public Use
  Company Number: US-SA-2015SA068198

PATIENT
  Age: 95 Year
  Sex: Male
  Weight: 68 kg

DRUGS (4)
  1. ALLEGRA ALLERGY [Suspect]
     Active Substance: FEXOFENADINE HYDROCHLORIDE
     Indication: MULTIPLE ALLERGIES
     Dosage: STARTED ABOUT 3 DAYS AGO
     Route: 048
  2. ALLEGRA ALLERGY [Suspect]
     Active Substance: FEXOFENADINE HYDROCHLORIDE
     Indication: MULTIPLE ALLERGIES
     Route: 048
     Dates: start: 20150516, end: 20150518
  3. ALLEGRA ALLERGY [Suspect]
     Active Substance: FEXOFENADINE HYDROCHLORIDE
     Indication: MULTIPLE ALLERGIES
     Dosage: STARTED ABOUT 3 DAYS AGO
     Route: 048
  4. LORATADINE. [Concomitant]
     Active Substance: LORATADINE
     Indication: HYPERSENSITIVITY
     Route: 065

REACTIONS (5)
  - Insomnia [Unknown]
  - Sneezing [Recovering/Resolving]
  - Wrong technique in product usage process [Unknown]
  - Productive cough [Recovering/Resolving]
  - Rhinorrhoea [Unknown]
